FAERS Safety Report 14408064 (Version 1)
Quarter: 2018Q1

REPORT INFORMATION
  Report Type: Spontaneous
  Country: US (occurrence: US)
  Receive Date: 20180118
  Receipt Date: 20180118
  Transmission Date: 20180509
  Serious: No
  Sender: FDA-Public Use
  Company Number: US-VIRTUS PHARMACEUTICALS, LLC-2017VTS00011

PATIENT
  Age: 91 Year
  Sex: Female

DRUGS (1)
  1. PROMETRIUM [Suspect]
     Active Substance: PROGESTERONE

REACTIONS (1)
  - Hot flush [Unknown]
